FAERS Safety Report 5905453-5 (Version None)
Quarter: 2008Q4

REPORT INFORMATION
  Report Type: 
  Country: None (occurrence: None)
  Receive Date: 20081001
  Receipt Date: 20081001
  Transmission Date: 20090506
  Serious: Yes (Other)
  Sender: FDA-Public Use
  Company Number: None

PATIENT
  Age: 56 Year
  Sex: Female
  Weight: 52.1637 kg

DRUGS (1)
  1. VIBRA-TABS [Suspect]
     Indication: STAPHYLOCOCCAL INFECTION
     Dosage: 100 MG #20 BID PO
     Route: 048
     Dates: start: 20080811, end: 20080831

REACTIONS (2)
  - ERYTHEMA [None]
  - FEELING HOT [None]
